FAERS Safety Report 11281792 (Version 1)
Quarter: 2015Q3

REPORT INFORMATION
  Report Type: Spontaneous
  Country: CN (occurrence: CN)
  Receive Date: 20150717
  Receipt Date: 20150717
  Transmission Date: 20151125
  Serious: Yes (Hospitalization)
  Sender: FDA-Public Use
  Company Number: PHHY2015CN085525

PATIENT

DRUGS (1)
  1. ACLASTA [Suspect]
     Active Substance: ZOLEDRONIC ACID
     Indication: PRODUCT USED FOR UNKNOWN INDICATION
     Dosage: UNK
     Route: 042
     Dates: start: 20150707

REACTIONS (4)
  - Beta 2 microglobulin urine increased [Unknown]
  - Influenza like illness [Recovering/Resolving]
  - Renal injury [Unknown]
  - Alpha 1 microglobulin increased [Unknown]
